FAERS Safety Report 6129967-0 (Version None)
Quarter: 2009Q1

REPORT INFORMATION
  Report Type: 
  Country: None (occurrence: None)
  Receive Date: 20090323
  Receipt Date: 20090323
  Transmission Date: 20090719
  Serious: Yes (Other)
  Sender: FDA-Public Use
  Company Number: None

PATIENT
  Age: 48 Year
  Sex: Female
  Weight: 87.9978 kg

DRUGS (2)
  1. LIPITOR [Suspect]
     Indication: BLOOD CHOLESTEROL INCREASED
     Dosage: 1X DAILY
     Dates: start: 20080801, end: 20081002
  2. MEVACOR [Suspect]
     Indication: BLOOD CHOLESTEROL INCREASED
     Dosage: 1X DAILY
     Dates: start: 20080728, end: 20080731

REACTIONS (10)
  - BACK PAIN [None]
  - DEPRESSION [None]
  - EXERCISE LACK OF [None]
  - MUSCLE SPASMS [None]
  - MYALGIA [None]
  - NAUSEA [None]
  - PAIN IN EXTREMITY [None]
  - POSTURE ABNORMAL [None]
  - SUICIDAL IDEATION [None]
  - WEIGHT INCREASED [None]
